FAERS Safety Report 13967014 (Version 1)
Quarter: 2017Q3

REPORT INFORMATION
  Report Type: Spontaneous
  Country: US (occurrence: None)
  Receive Date: 20170912
  Receipt Date: 20170912
  Transmission Date: 20171128
  Serious: Yes (Hospitalization)
  Sender: FDA-Public Use
  Company Number: None

PATIENT
  Age: 55 Year
  Sex: Male
  Weight: 85.28 kg

DRUGS (2)
  1. CHLORTHALIDONE. [Suspect]
     Active Substance: CHLORTHALIDONE
     Indication: HYPERTENSION
     Route: 048
     Dates: start: 20160901, end: 20170419
  2. ATORVASTATIN [Suspect]
     Active Substance: ATORVASTATIN
     Indication: HYPERLIPIDAEMIA
     Dates: start: 20170406, end: 20170419

REACTIONS (4)
  - Rhabdomyolysis [None]
  - Presyncope [None]
  - Hepatitis C [None]
  - Acute kidney injury [None]

NARRATIVE: CASE EVENT DATE: 20170426
